FAERS Safety Report 22037833 (Version 1)
Quarter: 2023Q1

REPORT INFORMATION
  Report Type: Spontaneous
  Country: US (occurrence: US)
  Receive Date: 20230227
  Receipt Date: 20230227
  Transmission Date: 20230417
  Serious: No
  Sender: FDA-Public Use
  Company Number: US-PADAGIS-2023PAD00125

PATIENT

DRUGS (1)
  1. CICLOPIROX [Suspect]
     Active Substance: CICLOPIROX
     Indication: Onychomycosis
     Dosage: UNK, QD
     Route: 061
     Dates: start: 202301

REACTIONS (5)
  - Nail growth abnormal [Unknown]
  - Scab [Unknown]
  - Nail discolouration [Unknown]
  - Application site pain [None]
  - Wrong technique in product usage process [Unknown]

NARRATIVE: CASE EVENT DATE: 20230101
